FAERS Safety Report 17564010 (Version 1)
Quarter: 2020Q1

REPORT INFORMATION
  Report Type: Spontaneous
  Country: US (occurrence: US)
  Receive Date: 20200313
  Receipt Date: 20200313
  Transmission Date: 20200409
  Serious: No
  Sender: FDA-Public Use
  Company Number: None

PATIENT
  Age: 64 Year
  Sex: Female

DRUGS (1)
  1. MYCOPHENOLATE MOFETIL 500MG TABLET [Suspect]
     Active Substance: MYCOPHENOLATE MOFETIL
     Dosage: ?          OTHER DOSE:1 TAB;?
     Route: 048
     Dates: start: 20200311, end: 20200311

REACTIONS (1)
  - Product prescribing error [None]

NARRATIVE: CASE EVENT DATE: 20200311
